FAERS Safety Report 14123309 (Version 4)
Quarter: 2017Q4

REPORT INFORMATION
  Report Type: Spontaneous
  Country: US (occurrence: US)
  Receive Date: 20171025
  Receipt Date: 20171109
  Transmission Date: 20180321
  Serious: Yes (Hospitalization, Other)
  Sender: FDA-Public Use
  Company Number: US-LUNDBECK-DKLU2038772

PATIENT
  Age: 74 Year
  Sex: Male

DRUGS (7)
  1. NORTHERA [Suspect]
     Active Substance: DROXIDOPA
     Indication: PARKINSON^S DISEASE
     Dosage: SCHEDULE A (TITRATING)
     Route: 048
     Dates: start: 20171012, end: 20171019
  2. NORTHERA [Suspect]
     Active Substance: DROXIDOPA
     Indication: ORTHOSTATIC HYPOTENSION
     Route: 048
     Dates: start: 20171012, end: 20171019
  3. NORTHERA [Suspect]
     Active Substance: DROXIDOPA
     Dosage: TITRATION UP TO 600 MG
     Route: 048
     Dates: start: 20171010, end: 20171021
  4. POTASSIUM [Concomitant]
     Active Substance: POTASSIUM
     Indication: PRODUCT USED FOR UNKNOWN INDICATION
     Route: 065
  5. FLORINEF ACETATE [Concomitant]
     Active Substance: FLUDROCORTISONE ACETATE
     Indication: PRODUCT USED FOR UNKNOWN INDICATION
     Route: 065
     Dates: end: 20171010
  6. NORTHERA [Suspect]
     Active Substance: DROXIDOPA
     Route: 065
     Dates: end: 20171022
  7. NORTHERA [Suspect]
     Active Substance: DROXIDOPA
     Route: 065
     Dates: start: 20171020

REACTIONS (23)
  - Urinary retention [Not Recovered/Not Resolved]
  - Dysstasia [Unknown]
  - Blood potassium increased [Unknown]
  - Drug ineffective [Unknown]
  - Unresponsive to stimuli [Unknown]
  - Pain in extremity [Unknown]
  - Hypotension [Unknown]
  - Confusional state [Unknown]
  - Inappropriate schedule of drug administration [Unknown]
  - Pulse absent [Unknown]
  - Chest pain [Unknown]
  - Dizziness [Unknown]
  - Fall [Unknown]
  - Fluid retention [Not Recovered/Not Resolved]
  - Condition aggravated [Unknown]
  - White blood cell count increased [Unknown]
  - Heart rate abnormal [Unknown]
  - Tremor [Unknown]
  - Peripheral swelling [Unknown]
  - Condition aggravated [Not Recovered/Not Resolved]
  - Pyrexia [Not Recovered/Not Resolved]
  - Gait inability [Not Recovered/Not Resolved]
  - Blood pressure orthostatic decreased [Unknown]

NARRATIVE: CASE EVENT DATE: 20171012
